FAERS Safety Report 20905999 (Version 1)
Quarter: 2022Q2

REPORT INFORMATION
  Report Type: Spontaneous
  Country: GR (occurrence: GR)
  Receive Date: 20220602
  Receipt Date: 20220602
  Transmission Date: 20220720
  Serious: Yes (Other)
  Sender: FDA-Public Use
  Company Number: GR-MEITHEAL-2022MPLIT00080

PATIENT
  Age: 74 Year
  Sex: Male

DRUGS (6)
  1. NEOSTIGMINE [Suspect]
     Active Substance: NEOSTIGMINE
     Indication: Intestinal pseudo-obstruction
     Dosage: LOADING DOSE
     Route: 042
  2. NEOSTIGMINE [Suspect]
     Active Substance: NEOSTIGMINE
     Dosage: MAINTENANCE DOSE
     Route: 042
  3. AMIODARONE [Suspect]
     Active Substance: AMIODARONE
     Indication: Intestinal pseudo-obstruction
     Dosage: LOADING DOSE WAS 5MG/MIN(300MGIN1HOUR)
     Route: 042
  4. AMIODARONE [Suspect]
     Active Substance: AMIODARONE
     Dosage: MAINTENANCE DOSE WAS 0.65MG/MIN(900MGIN23HOURS)
     Route: 042
  5. AMIODARONE [Suspect]
     Active Substance: AMIODARONE
     Dosage: 0.83MG/MIN (1200MGIN24HOURS).
     Route: 042
  6. AMIODARONE [Suspect]
     Active Substance: AMIODARONE
     Dosage: ON POD 7
     Route: 048

REACTIONS (3)
  - Drug interaction [Unknown]
  - Therapeutic product effect prolonged [Unknown]
  - Atrioventricular block complete [Recovered/Resolved]
